FAERS Safety Report 14221402 (Version 6)
Quarter: 2018Q1

REPORT INFORMATION
  Report Type: Spontaneous
  Country: US (occurrence: US)
  Receive Date: 20171124
  Receipt Date: 20180202
  Transmission Date: 20180508
  Serious: No
  Sender: FDA-Public Use
  Company Number: US-PFIZER INC-2017507219

PATIENT
  Age: 56 Year
  Sex: Female

DRUGS (12)
  1. METFORMIN [Concomitant]
     Active Substance: METFORMIN HYDROCHLORIDE
     Indication: DIABETES MELLITUS
     Dosage: 1000 MG, ONE TABLET BY MOUTH TWICE A DAY
     Route: 048
     Dates: start: 2010
  2. FLEXERIL [Concomitant]
     Active Substance: CYCLOBENZAPRINE HYDROCHLORIDE
     Indication: MUSCLE SPASMS
     Dosage: 10 MG, ONE TABLET THREE TIMES A DAY
     Route: 048
     Dates: start: 2010
  3. DULOXETINE. [Concomitant]
     Active Substance: DULOXETINE
     Indication: DEPRESSION
     Dosage: 60 MG, ONE TABLET TWICE A DAY
     Route: 048
     Dates: start: 2012
  4. LYRICA [Suspect]
     Active Substance: PREGABALIN
     Indication: NEURALGIA
  5. VICTOZA [Concomitant]
     Active Substance: LIRAGLUTIDE
     Indication: DIABETES MELLITUS
     Dosage: 18 UNITS, INJECTED INTO SKIN ONCE A DAY
     Route: 058
     Dates: start: 2010
  6. LOVASTATIN. [Concomitant]
     Active Substance: LOVASTATIN
     Indication: BLOOD CHOLESTEROL INCREASED
     Dosage: 40 MG, ONE TABLET ONCE A DAY
     Route: 048
     Dates: start: 2010
  7. LYRICA [Suspect]
     Active Substance: PREGABALIN
     Indication: NEUROPATHY PERIPHERAL
  8. PROZAC [Concomitant]
     Active Substance: FLUOXETINE HYDROCHLORIDE
     Indication: DEPRESSION
     Dosage: 40 MG, ONE TABLET ONCE A DAY
     Route: 048
  9. LISINOPRIL. [Concomitant]
     Active Substance: LISINOPRIL
     Indication: HYPERTENSION
     Dosage: 20 MG, ONE TABLET ONCE A DAY
     Route: 048
     Dates: start: 2010
  10. LYRICA [Suspect]
     Active Substance: PREGABALIN
     Indication: FIBROMYALGIA
     Dosage: 150 MG, ONE CAPSULE THREE TIMES A DAY
     Route: 048
     Dates: end: 201707
  11. METOPROLOL-HCT [Concomitant]
     Indication: HYPERTENSION
     Dosage: 1 DF, 1X/DAY ONE TABLET BY MOUTH ONCE A DAY(METOPROLOL TARTRATE - 50 MG, HYDROCHLOROTHIAZIDE - 25MG)
     Route: 048
     Dates: start: 2010
  12. LANTUS SOLASTAR [Concomitant]
     Indication: DIABETES MELLITUS
     Dosage: 26 UNITS, INJECTED INTO SKIN ONCE A DAY
     Route: 058
     Dates: start: 2010

REACTIONS (4)
  - Nightmare [Not Recovered/Not Resolved]
  - Pain [Not Recovered/Not Resolved]
  - Sleep disorder [Not Recovered/Not Resolved]
  - Rash [Unknown]

NARRATIVE: CASE EVENT DATE: 201707
